FAERS Safety Report 21979043 (Version 1)
Quarter: 2023Q1

REPORT INFORMATION
  Report Type: Spontaneous
  Country: US (occurrence: None)
  Receive Date: 20230209
  Receipt Date: 20230209
  Transmission Date: 20230417
  Serious: Yes (Other)
  Sender: FDA-Public Use
  Company Number: None

PATIENT
  Age: 60 Year
  Sex: Female
  Weight: 121.5 kg

DRUGS (30)
  1. QULIPTA [Suspect]
     Active Substance: ATOGEPANT
     Indication: Migraine
     Dosage: FREQUENCY : AT BEDTIME;?
     Route: 048
     Dates: start: 20230116, end: 20230127
  2. METFORMIN [Concomitant]
     Active Substance: METFORMIN HYDROCHLORIDE
  3. ATORVASTATIN [Concomitant]
     Active Substance: ATORVASTATIN
  4. VALSARTAN [Concomitant]
     Active Substance: VALSARTAN
  5. EPLERENONE [Concomitant]
     Active Substance: EPLERENONE
  6. SYNTHROID [Concomitant]
     Active Substance: LEVOTHYROXINE SODIUM
  7. FLUOXETINE [Concomitant]
     Active Substance: FLUOXETINE HYDROCHLORIDE
  8. AMLODIPINE [Concomitant]
     Active Substance: AMLODIPINE BESYLATE
  9. lansopraxole [Concomitant]
  10. COREG [Concomitant]
     Active Substance: CARVEDILOL
  11. simbocort [Concomitant]
  12. levalbuteral tartrate [Concomitant]
  13. azelastine hcoi [Concomitant]
  14. SINGULAIR [Concomitant]
     Active Substance: MONTELUKAST SODIUM
  15. MOUNJARO [Concomitant]
     Active Substance: TIRZEPATIDE
  16. myrebetriq [Concomitant]
  17. lamectial [Concomitant]
  18. DICYCLOMINE [Concomitant]
     Active Substance: DICYCLOMINE HYDROCHLORIDE
  19. HYDRALAZINE [Concomitant]
     Active Substance: HYDRALAZINE HYDROCHLORIDE
  20. MAGNESIUM [Concomitant]
     Active Substance: MAGNESIUM
  21. CALCIUM [Concomitant]
  22. ZYRTEC [Concomitant]
     Active Substance: CETIRIZINE HYDROCHLORIDE
  23. VITAMIN C [Concomitant]
     Active Substance: ASCORBIC ACID
  24. DIAZEPAM [Concomitant]
     Active Substance: DIAZEPAM
  25. LOPERAMIDE [Concomitant]
     Active Substance: LOPERAMIDE
  26. KETOROLAC [Concomitant]
     Active Substance: KETOROLAC TROMETHAMINE
  27. ONDANSETRON [Concomitant]
     Active Substance: ONDANSETRON
  28. MECLIZINE [Concomitant]
     Active Substance: MECLIZINE HYDROCHLORIDE
  29. PREDNISONE [Concomitant]
     Active Substance: PREDNISONE
  30. hemax [Concomitant]

REACTIONS (2)
  - Vertigo [None]
  - Condition aggravated [None]

NARRATIVE: CASE EVENT DATE: 20230127
